FAERS Safety Report 8560932-X (Version None)
Quarter: 2012Q3

REPORT INFORMATION
  Report Type: 
  Country: None (occurrence: None)
  Receive Date: 20120802
  Receipt Date: 20120725
  Transmission Date: 20120928
  Serious: Yes (Hospitalization)
  Sender: FDA-Public Use
  Company Number: US-ELI_LILLY_AND_COMPANY-US201108005313

PATIENT
  Sex: Female

DRUGS (4)
  1. DIOVAN [Concomitant]
     Dosage: UNK
  2. FORTEO [Suspect]
     Indication: OSTEOPOROSIS
     Dosage: UNK
  3. SYNTHROID [Concomitant]
     Dosage: UNK
  4. LEXAPRO [Concomitant]
     Dosage: UNK

REACTIONS (4)
  - NAUSEA [None]
  - WEIGHT DECREASED [None]
  - ASTHENIA [None]
  - ANAEMIA [None]
